FAERS Safety Report 4664314-2 (Version None)
Quarter: 2005Q2

REPORT INFORMATION
  Report Type: 
  Country: None (occurrence: None)
  Receive Date: 20050518
  Receipt Date: 20050505
  Transmission Date: 20051028
  Serious: Yes (Other)
  Sender: FDA-Public Use
  Company Number: US-BRISTOL-MYERS SQUIBB COMPANY-12958765

PATIENT
  Age: 18 Year
  Sex: Male

DRUGS (2)
  1. ABILIFY [Suspect]
     Dosage: INITIAL TX IN THE FALL OF 2004. DISCONTINUED IN THE SPRING OF 2005.
     Dates: start: 20040101, end: 20050101
  2. CLOZARIL [Concomitant]

REACTIONS (1)
  - LUPUS-LIKE SYNDROME [None]
